FAERS Safety Report 8443919-7 (Version None)
Quarter: 2012Q2

REPORT INFORMATION
  Report Type: 
  Country: None (occurrence: None)
  Receive Date: 20120618
  Receipt Date: 20120609
  Transmission Date: 20120825
  Serious: Yes (Hospitalization)
  Sender: FDA-Public Use
  Company Number: US-BAYER-2012-034705

PATIENT
  Age: 28 Year
  Sex: Female
  Weight: 61.224 kg

DRUGS (14)
  1. CELEBREX [Concomitant]
     Route: 048
  2. AMBIEN [Concomitant]
     Route: 048
  3. DEPAKOTE [Concomitant]
     Dosage: UNK
  4. PROVENTIL [Concomitant]
     Indication: WHEEZING
     Dosage: UNK UNK, PRN
  5. DETROL LA [Concomitant]
  6. PROPRANOLOL [Concomitant]
  7. ELMIRON [Concomitant]
  8. YAZ [Suspect]
     Dosage: UNK
     Dates: start: 20090701, end: 20101119
  9. PROZAC [Concomitant]
     Route: 048
  10. GEODON [Concomitant]
     Route: 048
  11. NEXIUM [Concomitant]
     Route: 048
  12. VISTARIL [Concomitant]
     Indication: PRURITUS
     Dosage: PRN
  13. CLONAZEPAM [Concomitant]
     Dosage: UNK UNK, PRN
  14. RELPAX [Concomitant]
     Indication: MIGRAINE
     Dosage: UNK UNK, PRN

REACTIONS (7)
  - CHOLECYSTITIS CHRONIC [None]
  - INJURY [None]
  - GENERAL PHYSICAL HEALTH DETERIORATION [None]
  - GALLBLADDER DISORDER [None]
  - ANXIETY [None]
  - EMOTIONAL DISTRESS [None]
  - PAIN [None]
